FAERS Safety Report 12178361 (Version 1)
Quarter: 2016Q1

REPORT INFORMATION
  Report Type: Spontaneous
  Country: US (occurrence: US)
  Receive Date: 20160314
  Receipt Date: 20160314
  Transmission Date: 20160526
  Serious: No
  Sender: FDA-Public Use
  Company Number: US-SA-2015SA213309

PATIENT
  Age: 74 Year
  Sex: Female

DRUGS (6)
  1. CORTISONE [Concomitant]
     Active Substance: CORTISONE\HYDROCORTISONE
  2. METFORMIN [Concomitant]
     Active Substance: METFORMIN HYDROCHLORIDE
  3. SOLOSTAR [Concomitant]
     Active Substance: DEVICE
     Dates: start: 201512
  4. TOUJEO [Suspect]
     Active Substance: INSULIN GLARGINE
     Indication: TYPE 2 DIABETES MELLITUS
     Dosage: DOSE:20 UNIT(S)
     Route: 065
     Dates: start: 201512, end: 201512
  5. SOLOSTAR [Concomitant]
     Active Substance: DEVICE
     Dates: start: 201512, end: 201512
  6. TOUJEO [Suspect]
     Active Substance: INSULIN GLARGINE
     Indication: TYPE 2 DIABETES MELLITUS
     Dosage: DOSE - 10 UNITS IN THE MORNING AND 20 UNITS IN THE EVENING.
     Route: 065
     Dates: start: 201512

REACTIONS (1)
  - Injection site pruritus [Unknown]
